FAERS Safety Report 8041488-7 (Version None)
Quarter: 2012Q1

REPORT INFORMATION
  Report Type: 
  Country: None (occurrence: None)
  Receive Date: 20120112
  Receipt Date: 20120106
  Transmission Date: 20120608
  Serious: Yes (Death, Life-Threatening)
  Sender: FDA-Public Use
  Company Number: DK-PFIZER INC-2005171015

PATIENT
  Age: 15 Year
  Sex: Female

DRUGS (3)
  1. SOLU-MEDROL [Suspect]
     Indication: STATUS ASTHMATICUS
     Route: 042
     Dates: start: 20051121, end: 20051121
  2. ALBUTEROL SULFATE AUTOHALER [Concomitant]
     Dosage: 5
     Route: 055
  3. VENTOLIN [Concomitant]
     Dosage: 5 MG/L
     Dates: start: 20051121

REACTIONS (5)
  - INJECTION SITE PAIN [None]
  - CARDIAC ARREST [None]
  - BRADYCARDIA [None]
  - BRONCHOSPASM [None]
  - ANAPHYLACTIC REACTION [None]
